FAERS Safety Report 6125773-1 (Version None)
Quarter: 2009Q1

REPORT INFORMATION
  Report Type: 
  Country: None (occurrence: None)
  Receive Date: 20090319
  Receipt Date: 20090319
  Transmission Date: 20090719
  Serious: Yes (Other)
  Sender: FDA-Public Use
  Company Number: None

PATIENT
  Sex: Male
  Weight: 79.3795 kg

DRUGS (1)
  1. CLINDAMYCIN HCL [Suspect]
     Indication: TOOTH ABSCESS
     Dosage: 1 CAPSULE 4 TIMES PER DAY PO
     Route: 048
     Dates: start: 20090122, end: 20090127

REACTIONS (5)
  - ABDOMINAL PAIN LOWER [None]
  - ABDOMINAL PAIN UPPER [None]
  - BACTERIA STOOL IDENTIFIED [None]
  - DIARRHOEA [None]
  - HAEMATOCHEZIA [None]
